FAERS Safety Report 9445170 (Version 1)
Quarter: 2013Q3

REPORT INFORMATION
  Report Type: Spontaneous
  Country: US (occurrence: US)
  Receive Date: 20130807
  Receipt Date: 20130807
  Transmission Date: 20140515
  Serious: Yes (Other)
  Sender: FDA-Public Use
  Company Number: US-VIIV HEALTHCARE LIMITED-A1035565A

PATIENT
  Age: 70 Year
  Sex: Male

DRUGS (6)
  1. LAMIVUDINE + ZIDOVUDINE [Suspect]
     Indication: HIV INFECTION
     Dosage: 1TAB TWICE PER DAY
     Route: 048
     Dates: start: 201303, end: 201303
  2. CLONIDINE [Concomitant]
  3. NORVASC [Concomitant]
  4. LISINOPRIL [Concomitant]
  5. THYROXINE [Concomitant]
  6. COMBIVIR [Concomitant]
     Indication: HIV INFECTION
     Route: 048

REACTIONS (3)
  - Blood HIV RNA increased [Recovered/Resolved]
  - T-lymphocyte count decreased [Recovered/Resolved]
  - Influenza like illness [Recovered/Resolved]
